FAERS Safety Report 10418039 (Version 1)
Quarter: 2014Q3

REPORT INFORMATION
  Report Type: Spontaneous
  Country: FR (occurrence: FR)
  Receive Date: 20140829
  Receipt Date: 20140829
  Transmission Date: 20150326
  Serious: Yes (Other)
  Sender: FDA-Public Use
  Company Number: FR-SA-2014SA113944

PATIENT
  Age: 65 Year
  Sex: Male

DRUGS (3)
  1. LANTUS [Suspect]
     Active Substance: INSULIN GLARGINE
     Indication: DIABETES MELLITUS
     Route: 058
     Dates: start: 20140722, end: 201408
  2. VICTOZA [Suspect]
     Active Substance: LIRAGLUTIDE
     Indication: DIABETES MELLITUS
     Route: 065
     Dates: start: 20140722, end: 201408
  3. UMULINE [Concomitant]
     Active Substance: INSULIN HUMAN

REACTIONS (1)
  - VIIth nerve paralysis [Not Recovered/Not Resolved]

NARRATIVE: CASE EVENT DATE: 201407
